FAERS Safety Report 21620959 (Version 1)
Quarter: 2022Q4

REPORT INFORMATION
  Report Type: Spontaneous
  Country: US (occurrence: None)
  Receive Date: 20221118
  Receipt Date: 20221118
  Transmission Date: 20230113
  Serious: Yes (Hospitalization)
  Sender: FDA-Public Use
  Company Number: None

PATIENT
  Age: 53 Year
  Sex: Female

DRUGS (1)
  1. DEFERASIROX [Suspect]
     Active Substance: DEFERASIROX
     Dosage: FREQUENCY : DAILY;?
     Route: 048

REACTIONS (8)
  - Sickle cell anaemia with crisis [None]
  - Back pain [None]
  - Gait disturbance [None]
  - Haemoglobin abnormal [None]
  - Blood potassium abnormal [None]
  - Blood calcium abnormal [None]
  - Thoracic vertebral fracture [None]
  - Bedridden [None]

NARRATIVE: CASE EVENT DATE: 20221118
